FAERS Safety Report 8264888-9 (Version None)
Quarter: 2012Q2

REPORT INFORMATION
  Report Type: 
  Country: None (occurrence: None)
  Receive Date: 20120406
  Receipt Date: 20120327
  Transmission Date: 20120825
  Serious: Yes (Disabling, Other)
  Sender: FDA-Public Use
  Company Number: US-JNJFOC-20111203587

PATIENT
  Sex: Female
  Weight: 54.43 kg

DRUGS (1)
  1. LISTERINE TOTAL CARE ANTICAVITY MOUTHWASH FRESH MINT [Suspect]
     Indication: DENTAL DISORDER PROPHYLAXIS
     Dosage: 2 TSPS
     Route: 048
     Dates: start: 20110401, end: 20110401

REACTIONS (5)
  - PAIN [None]
  - OROPHARYNGEAL BLISTERING [None]
  - ULCER [None]
  - ORAL MUCOSAL EXFOLIATION [None]
  - BURNING SENSATION [None]
